FAERS Safety Report 11009671 (Version 1)
Quarter: 2015Q2

REPORT INFORMATION
  Report Type: Spontaneous
  Country: US (occurrence: None)
  Receive Date: 20150409
  Receipt Date: 20150409
  Transmission Date: 20150821
  Serious: Yes (Hospitalization)
  Sender: FDA-Public Use
  Company Number: None

PATIENT
  Age: 78 Year
  Sex: Female

DRUGS (8)
  1. ZOFRAN [Concomitant]
     Active Substance: ONDANSETRON HYDROCHLORIDE
  2. CITRICAL [Concomitant]
     Active Substance: CALCIUM CITRATE
  3. DEXAMETHASONE. [Concomitant]
     Active Substance: DEXAMETHASONE
  4. NORCO [Concomitant]
     Active Substance: ACETAMINOPHEN\HYDROCODONE BITARTRATE
  5. VITAMIN D [Concomitant]
     Active Substance: CHOLECALCIFEROL
  6. IRON [Concomitant]
     Active Substance: IRON
  7. IMBRUVICA [Suspect]
     Active Substance: IBRUTINIB
     Indication: WALDENSTROM^S MACROGLOBULINAEMIA
     Dosage: 280MG (2 CAPS) ONCE DAILY ORAL
     Route: 048
     Dates: start: 20150306
  8. TOPROL XL [Concomitant]
     Active Substance: METOPROLOL SUCCINATE

REACTIONS (1)
  - Cerebral haemorrhage [None]

NARRATIVE: CASE EVENT DATE: 20150406
